FAERS Safety Report 21548993 (Version 1)
Quarter: 2022Q4

REPORT INFORMATION
  Report Type: Spontaneous
  Country: US (occurrence: None)
  Receive Date: 20221102
  Receipt Date: 20221102
  Transmission Date: 20230113
  Serious: Yes (Hospitalization)
  Sender: FDA-Public Use
  Company Number: None

PATIENT
  Age: 60 Year
  Sex: Male

DRUGS (1)
  1. EVEROLIMUS [Suspect]
     Active Substance: EVEROLIMUS
     Dosage: 5MG DAILY ORAL
     Route: 048
     Dates: end: 202210

REACTIONS (6)
  - Diarrhoea [None]
  - Dehydration [None]
  - Renal impairment [None]
  - Pneumonia [None]
  - Sepsis [None]
  - Dialysis [None]

NARRATIVE: CASE EVENT DATE: 20221005
